FAERS Safety Report 16853405 (Version 1)
Quarter: 2019Q3

REPORT INFORMATION
  Report Type: Spontaneous
  Country: US (occurrence: US)
  Receive Date: 20190802
  Receipt Date: 20190802
  Transmission Date: 20191005
  Serious: Yes (Death, Hospitalization)
  Sender: FDA-Public Use
  Company Number: None

PATIENT
  Age: 73 Year
  Sex: Male

DRUGS (16)
  1. BRENTUXIMAB [Suspect]
     Active Substance: BRENTUXIMAB VEDOTIN
     Indication: LYMPHOMA
     Route: 042
     Dates: start: 20190214, end: 20190214
  2. CYCLOPHOSPHAMIDE. [Concomitant]
     Active Substance: CYCLOPHOSPHAMIDE
  3. GABAPENTIN. [Concomitant]
     Active Substance: GABAPENTIN
  4. SENNA [Concomitant]
     Active Substance: SENNA LEAF\SENNOSIDES\SENNOSIDES A AND B
  5. DOXORUBICIN [Concomitant]
     Active Substance: DOXORUBICIN
  6. MELATONIN [Concomitant]
     Active Substance: MELATONIN
  7. PROCHLORPERAZINE. [Concomitant]
     Active Substance: PROCHLORPERAZINE
  8. DOCUSATE [Concomitant]
     Active Substance: DOCUSATE
  9. HYDROXYZINE [Concomitant]
     Active Substance: HYDROXYZINE HYDROCHLORIDE
  10. TRAZODONE [Concomitant]
     Active Substance: TRAZODONE HYDROCHLORIDE
  11. TRIAMCINOLONE ACETONIDE. [Concomitant]
     Active Substance: TRIAMCINOLONE ACETONIDE
  12. POLYETHYLENE GLYCOL 3350. [Concomitant]
     Active Substance: POLYETHYLENE GLYCOL 3350
  13. ONDANSETRON [Concomitant]
     Active Substance: ONDANSETRON
  14. DRONABINOL. [Concomitant]
     Active Substance: DRONABINOL
  15. PREDNISONE. [Concomitant]
     Active Substance: PREDNISONE
  16. VALACYCLOVIR [Concomitant]
     Active Substance: VALACYCLOVIR HYDROCHLORIDE

REACTIONS (17)
  - Generalised oedema [None]
  - Transaminases increased [None]
  - Weight decreased [None]
  - Pneumonitis [None]
  - Lymphangiosis carcinomatosa [None]
  - Jugular vein thrombosis [None]
  - Oedema peripheral [None]
  - Respiratory failure [None]
  - Renal tubular necrosis [None]
  - Oliguria [None]
  - Malaise [None]
  - Hyperbilirubinaemia [None]
  - Decreased appetite [None]
  - Hypoxia [None]
  - Blood uric acid increased [None]
  - Acute kidney injury [None]
  - White blood cell count increased [None]

NARRATIVE: CASE EVENT DATE: 20190331
